FAERS Safety Report 5247079-5 (Version None)
Quarter: 2007Q1

REPORT INFORMATION
  Report Type: 
  Country: None (occurrence: None)
  Receive Date: 20070221
  Receipt Date: 20070208
  Transmission Date: 20070707
  Serious: Yes (Other)
  Sender: FDA-Public Use
  Company Number: 2006BI017393

PATIENT
  Age: 40 Year
  Sex: Female

DRUGS (9)
  1. NATALIZUMAB [Suspect]
     Indication: MULTIPLE SCLEROSIS
     Dosage: 30 MG;QM;IV
     Route: 042
     Dates: start: 20061009
  2. LEXAPRO [Concomitant]
  3. ESTRADIOL [Concomitant]
  4. NORTRIPTYLINE HCL [Concomitant]
  5. NAMENDA [Concomitant]
  6. ACTONEL [Concomitant]
  7. KLONOPIN [Concomitant]
  8. ARICEPT [Concomitant]
  9. MECLIZINE [Concomitant]

REACTIONS (4)
  - CONDITION AGGRAVATED [None]
  - GRAND MAL CONVULSION [None]
  - MULTIPLE SCLEROSIS [None]
  - NUCLEAR MAGNETIC RESONANCE IMAGING BRAIN ABNORMAL [None]
